FAERS Safety Report 4743951-0 (Version None)
Quarter: 2005Q3

REPORT INFORMATION
  Report Type: 
  Country: None (occurrence: None)
  Receive Date: 20050812
  Receipt Date: 20050520
  Transmission Date: 20060218
  Serious: Yes (Hospitalization)
  Sender: FDA-Public Use
  Company Number: FR-ROCHE-405555

PATIENT
  Age: 49 Year
  Sex: Male

DRUGS (5)
  1. CELLCEPT [Suspect]
     Indication: PROPHYLAXIS AGAINST TRANSPLANT REJECTION
     Route: 048
     Dates: start: 20050503
  2. ATARAX [Suspect]
     Indication: DRUG INTOLERANCE
     Dosage: TOTAL.
     Route: 048
     Dates: start: 20050503, end: 20050503
  3. POLARAMINE [Suspect]
     Route: 042
     Dates: start: 20050503, end: 20050503
  4. SOLU-MEDROL [Suspect]
     Route: 042
     Dates: start: 20050503
  5. SIMULECT [Suspect]
     Dosage: TOTAL
     Route: 042
     Dates: start: 20050503, end: 20050503

REACTIONS (1)
  - HAEMOLYTIC URAEMIC SYNDROME [None]
